FAERS Safety Report 9190076 (Version 1)
Quarter: 2013Q1

REPORT INFORMATION
  Report Type: Spontaneous
  Country: US (occurrence: US)
  Receive Date: 20130326
  Receipt Date: 20130326
  Transmission Date: 20140127
  Serious: No
  Sender: FDA-Public Use
  Company Number: US-PFIZER INC-2013093476

PATIENT
  Age: 87 Year
  Sex: Male
  Weight: 63 kg

DRUGS (2)
  1. LATANOPROST [Suspect]
     Indication: GLAUCOMA
     Dosage: 1 DROP IN LEFT EYE, 1X/DAY
     Route: 047
     Dates: start: 20121111
  2. MURO 128 [Concomitant]
     Indication: EYE DISORDER
     Dosage: UNK
     Route: 047

REACTIONS (2)
  - Drug administration error [Unknown]
  - Hearing impaired [Unknown]
